FAERS Safety Report 9516270 (Version 1)
Quarter: 2013Q3

REPORT INFORMATION
  Report Type: Spontaneous
  Country: DE (occurrence: DE)
  Receive Date: 20130911
  Receipt Date: 20130911
  Transmission Date: 20140515
  Serious: Yes (Other)
  Sender: FDA-Public Use
  Company Number: DE-TEVA-430088GER

PATIENT
  Age: 39 Year
  Sex: Female

DRUGS (2)
  1. DOXEPIN [Suspect]
     Indication: DEPRESSED MOOD
     Route: 048
     Dates: start: 201301, end: 20130719
  2. SEDARISTON [Concomitant]
     Indication: SLEEP DISORDER
     Dosage: UP TO 3 CAPSULES DAILY
     Route: 048

REACTIONS (1)
  - Atrioventricular block complete [Recovered/Resolved]
